FAERS Safety Report 14333487 (Version 2)
Quarter: 2018Q1

REPORT INFORMATION
  Report Type: Spontaneous
  Country: HR (occurrence: HR)
  Receive Date: 20171228
  Receipt Date: 20180219
  Transmission Date: 20180509
  Serious: Yes (Hospitalization)
  Sender: FDA-Public Use
  Company Number: HR-ELI_LILLY_AND_COMPANY-HR201712011142

PATIENT
  Age: 55 Year
  Sex: Female
  Weight: 71.2 kg

DRUGS (7)
  1. NORMABEL [Concomitant]
     Active Substance: DIAZEPAM
     Indication: BIPOLAR DISORDER
     Dosage: 10 MG, DAILY
     Route: 048
  2. LITIJEV KARBONAT JADRAN [Concomitant]
     Indication: BIPOLAR DISORDER
     Dosage: 900 MG, DAILY
     Route: 048
     Dates: start: 2000
  3. ZYPADHERA [Suspect]
     Active Substance: OLANZAPINE PAMOATE
     Indication: BIPOLAR DISORDER
     Dosage: 300 MG, DAILY
     Route: 030
     Dates: start: 20171121, end: 20171121
  4. AKINETON [Concomitant]
     Active Substance: BIPERIDEN HYDROCHLORIDE
     Indication: BIPOLAR DISORDER
     Dosage: 2 MG, DAILY
     Route: 048
  5. HALDOL [Suspect]
     Active Substance: HALOPERIDOL
     Indication: BIPOLAR DISORDER
     Dosage: 6 MG, DAILY
     Route: 048
     Dates: start: 20171108, end: 20171129
  6. PRAZINE (PROMAZINE HYDROCHLORIDE) [Concomitant]
     Active Substance: PROMAZINE HYDROCHLORIDE
     Indication: BIPOLAR DISORDER
     Dosage: 75 MG, DAILY
     Route: 048
  7. TEGRETOL [Concomitant]
     Active Substance: CARBAMAZEPINE
     Indication: BIPOLAR DISORDER
     Dosage: 200 MG, DAILY
     Route: 048
     Dates: start: 2017, end: 20171129

REACTIONS (6)
  - Akathisia [Recovered/Resolved]
  - Extrapyramidal disorder [Recovered/Resolved]
  - Dysphemia [Recovered/Resolved]
  - Dysarthria [Recovered/Resolved]
  - Dry mouth [Recovered/Resolved]
  - Dysphagia [Recovered/Resolved]

NARRATIVE: CASE EVENT DATE: 201711
